FAERS Safety Report 4663499-1 (Version None)
Quarter: 2005Q2

REPORT INFORMATION
  Report Type: 
  Country: None (occurrence: None)
  Receive Date: 20050517
  Receipt Date: 20050415
  Transmission Date: 20051028
  Serious: Yes (Other)
  Sender: FDA-Public Use
  Company Number: US-GLAXOSMITHKLINE-A0554390A

PATIENT
  Sex: Female

DRUGS (7)
  1. ESKALITH CR [Suspect]
     Route: 048
     Dates: start: 19710101
  2. SYNTHROID [Concomitant]
  3. CYMBALTA [Concomitant]
  4. XANAX [Concomitant]
  5. PREVACID [Concomitant]
  6. PROTONIX [Concomitant]
     Route: 042
  7. NEXIUM [Concomitant]

REACTIONS (4)
  - RENAL FAILURE [None]
  - SPEECH DISORDER [None]
  - SUICIDE ATTEMPT [None]
  - TREMOR [None]
